FAERS Safety Report 24283993 (Version 2)
Quarter: 2024Q4

REPORT INFORMATION
  Report Type: Spontaneous
  Country: US (occurrence: US)
  Receive Date: 20240905
  Receipt Date: 20241010
  Transmission Date: 20250115
  Serious: No
  Sender: CSL BEHRING
  Company Number: US-BEH-2023166463

PATIENT
  Age: 6 Year
  Sex: Female

DRUGS (2)
  1. CORIFACT [Suspect]
     Active Substance: FACTOR XIII CONCENTRATE (HUMAN)
     Indication: Haemophilia
     Dosage: 700-800 IU, QMT
     Route: 042
     Dates: start: 202212
  2. CORIFACT [Suspect]
     Active Substance: FACTOR XIII CONCENTRATE (HUMAN)
     Indication: Haemorrhage
     Dosage: 1000 IU
     Route: 042
     Dates: start: 201808

REACTIONS (3)
  - Product use issue [Unknown]
  - Head injury [Unknown]
  - Therapy change [Unknown]

NARRATIVE: CASE EVENT DATE: 20240818
